FAERS Safety Report 4523925-5 (Version None)
Quarter: 2004Q4

REPORT INFORMATION
  Report Type: 
  Country: None (occurrence: None)
  Receive Date: 20041209
  Receipt Date: 20041124
  Transmission Date: 20050328
  Serious: Yes (Other)
  Sender: FDA-Public Use
  Company Number: 204061

PATIENT
  Age: 59 Year
  Sex: Male
  Weight: 73.9363 kg

DRUGS (3)
  1. AVONEX [Suspect]
     Indication: MULTIPLE SCLEROSIS
     Dosage: 30 UG; QW; IM
     Route: 030
     Dates: start: 19980601, end: 20030101
  2. AVONEX [Suspect]
     Indication: MULTIPLE SCLEROSIS
     Dosage: 30 UG; QW; IM
     Route: 030
     Dates: start: 20030101
  3. MULTI-VITAMINS [Concomitant]

REACTIONS (5)
  - BASAL CELL CARCINOMA [None]
  - HAEMORRHAGE [None]
  - INJURY [None]
  - SKIN LACERATION [None]
  - SQUAMOUS CELL CARCINOMA [None]
